FAERS Safety Report 24589385 (Version 2)
Quarter: 2024Q4

REPORT INFORMATION
  Report Type: Spontaneous
  Country: BR (occurrence: BR)
  Receive Date: 20241107
  Receipt Date: 20241119
  Transmission Date: 20250115
  Serious: Yes (Other)
  Sender: NOVO NORDISK
  Company Number: BR-NOVOPROD-1308827

PATIENT
  Age: 45 Year
  Sex: Female

DRUGS (1)
  1. OZEMPIC [Suspect]
     Active Substance: SEMAGLUTIDE
     Indication: Product used for unknown indication
     Dosage: 20 CLICKS (0.25 MG)
     Dates: start: 20241009

REACTIONS (4)
  - Cerebrovascular accident [Recovered/Resolved]
  - Hypoglycaemia [Recovered/Resolved]
  - Counterfeit product administered [Unknown]
  - Wrong technique in product usage process [Unknown]

NARRATIVE: CASE EVENT DATE: 20241009
